FAERS Safety Report 21723317 (Version 1)
Quarter: 2022Q4

REPORT INFORMATION
  Report Type: Spontaneous
  Country: None (occurrence: CA)
  Receive Date: 20221213
  Receipt Date: 20221213
  Transmission Date: 20230113
  Serious: Yes (Other)
  Sender: FDA-Public Use
  Company Number: CA-Ascend Therapeutics US, LLC-2135833

PATIENT
  Age: 23 Year
  Sex: Male

DRUGS (7)
  1. ESTROGEL [Suspect]
     Active Substance: ESTRADIOL
     Indication: Gender reassignment therapy
     Route: 048
  2. ESTROGEL [Suspect]
     Active Substance: ESTRADIOL
  3. ESTROGEL [Suspect]
     Active Substance: ESTRADIOL
     Route: 048
  4. ESTROGEL [Suspect]
     Active Substance: ESTRADIOL
     Route: 048
  5. ESTROGEL [Suspect]
     Active Substance: ESTRADIOL
     Route: 048
  6. CYPROTERONE ACETATE [Suspect]
     Active Substance: CYPROTERONE ACETATE
     Route: 065
  7. BENRALIZUMAB(BENRALIZUMAB) [Concomitant]
     Route: 065

REACTIONS (7)
  - Asthma [Unknown]
  - Bronchopulmonary aspergillosis allergic [Unknown]
  - Eczema [Unknown]
  - Infective pulmonary exacerbation of cystic fibrosis [Unknown]
  - Pulmonary function test decreased [Unknown]
  - Product use in unapproved indication [Unknown]
  - Off label use [Unknown]
